FAERS Safety Report 5828120-5 (Version None)
Quarter: 2008Q3

REPORT INFORMATION
  Report Type: 
  Country: None (occurrence: None)
  Receive Date: 20080729
  Receipt Date: 20080729
  Transmission Date: 20090109
  Serious: Yes (Hospitalization)
  Sender: FDA-Public Use
  Company Number: None

PATIENT
  Age: 52 Year
  Sex: Male
  Weight: 106.5 kg

DRUGS (1)
  1. REOPRO [Suspect]
     Dosage: 0.25 MG/KG IV, 0.125 MCG/KG/MI
     Route: 042

REACTIONS (1)
  - PLATELET COUNT DECREASED [None]
